FAERS Safety Report 9408228 (Version 2)
Quarter: 2013Q3

REPORT INFORMATION
  Report Type: Report from Study
  Country: CA (occurrence: CA)
  Receive Date: 20130718
  Receipt Date: 20130724
  Transmission Date: 20140515
  Serious: Yes (Hospitalization, Other)
  Sender: FDA-Public Use
  Company Number: CA-ABBOTT-13P-028-1118822-00

PATIENT
  Age: 81 Year
  Sex: Male
  Weight: 71.73 kg

DRUGS (1)
  1. LUPRON DEPOT [Suspect]
     Indication: PROSTATE CANCER
     Dosage: 3 MONTHS DEPOT
     Route: 030
     Dates: start: 20130425

REACTIONS (2)
  - Hip fracture [Unknown]
  - Fall [Unknown]
